FAERS Safety Report 19305722 (Version 1)
Quarter: 2021Q2

REPORT INFORMATION
  Report Type: Spontaneous
  Country: US (occurrence: US)
  Receive Date: 20210526
  Receipt Date: 20210526
  Transmission Date: 20210717
  Serious: Yes (Other)
  Sender: FDA-Public Use
  Company Number: US-JNJFOC-20210533109

PATIENT
  Sex: Female
  Weight: 113.05 kg

DRUGS (3)
  1. TREMFYA [Suspect]
     Active Substance: GUSELKUMAB
     Indication: PSORIATIC ARTHROPATHY
  2. TREMFYA [Suspect]
     Active Substance: GUSELKUMAB
     Indication: RHEUMATOID ARTHRITIS
  3. TREMFYA [Suspect]
     Active Substance: GUSELKUMAB
     Indication: PSORIASIS
     Route: 058
     Dates: start: 20200711

REACTIONS (4)
  - Product packaging issue [Unknown]
  - Tooth infection [Unknown]
  - Infection [Not Recovered/Not Resolved]
  - Morganella infection [Unknown]

NARRATIVE: CASE EVENT DATE: 2020
